FAERS Safety Report 7864090-6 (Version None)
Quarter: 2011Q4

REPORT INFORMATION
  Report Type: 
  Country: None (occurrence: None)
  Receive Date: 20111028
  Receipt Date: 20111026
  Transmission Date: 20120403
  Serious: Yes (Hospitalization, Other)
  Sender: FDA-Public Use
  Company Number: US-JNJFOC-20090709034

PATIENT
  Sex: Male
  Weight: 103.3 kg

DRUGS (8)
  1. DOXORUBICIN HCL [Suspect]
     Route: 042
  2. DOXORUBICIN HCL [Suspect]
     Indication: DIFFUSE LARGE B-CELL LYMPHOMA
     Route: 042
     Dates: end: 20090723
  3. VELCADE [Suspect]
     Indication: DIFFUSE LARGE B-CELL LYMPHOMA
     Route: 042
     Dates: start: 20090622, end: 20090723
  4. LORAZEPAM [Concomitant]
     Indication: NAUSEA
     Route: 065
     Dates: start: 20090720
  5. LORAZEPAM [Concomitant]
     Indication: VOMITING
     Route: 065
     Dates: start: 20090720
  6. DOXORUBICIN HCL [Suspect]
     Route: 042
     Dates: start: 20090702
  7. RITUXAN [Suspect]
     Indication: DIFFUSE LARGE B-CELL LYMPHOMA
     Route: 042
     Dates: start: 20090629, end: 20090723
  8. ALOXI [Concomitant]
     Indication: PREMEDICATION
     Route: 065
     Dates: start: 20090720

REACTIONS (3)
  - ACUTE PRERENAL FAILURE [None]
  - VOMITING [None]
  - DIARRHOEA [None]
